FAERS Safety Report 7092747-6 (Version None)
Quarter: 2010Q4

REPORT INFORMATION
  Report Type: 
  Country: None (occurrence: None)
  Receive Date: 20101110
  Receipt Date: 20101029
  Transmission Date: 20110411
  Serious: Yes (Hospitalization)
  Sender: FDA-Public Use
  Company Number: US-CELGENEUS-163-21880-10080814

PATIENT
  Sex: Female

DRUGS (2)
  1. REVLIMID [Suspect]
     Route: 048
     Dates: start: 20091028, end: 20090101
  2. REVLIMID [Suspect]
     Route: 048
     Dates: start: 20100401

REACTIONS (2)
  - COLITIS [None]
  - DYSPNOEA [None]
